FAERS Safety Report 15746100 (Version 8)
Quarter: 2020Q2

REPORT INFORMATION
  Report Type: Report from Study
  Country: US (occurrence: US)
  Receive Date: 20181220
  Receipt Date: 20200505
  Transmission Date: 20200713
  Serious: Yes (Hospitalization, Other)
  Sender: FDA-Public Use
  Company Number: US-ACTELION-A-US2017-164172

PATIENT
  Age: 66 Year
  Sex: Female

DRUGS (31)
  1. IRBESARTAN. [Concomitant]
     Active Substance: IRBESARTAN
  2. LEVALBUTEROL. [Concomitant]
     Active Substance: LEVALBUTEROL
  3. MELOXICAM. [Concomitant]
     Active Substance: MELOXICAM
  4. TRACLEER [Suspect]
     Active Substance: BOSENTAN
     Indication: PULMONARY ARTERIAL HYPERTENSION
     Dosage: 125 MG, BID
     Route: 048
     Dates: start: 2003
  5. ADVAIR HFA [Concomitant]
     Active Substance: FLUTICASONE PROPIONATE\SALMETEROL XINAFOATE
  6. AMLODIPINE [Concomitant]
     Active Substance: AMLODIPINE BESYLATE
  7. CURCUMIN [Concomitant]
     Active Substance: CURCUMIN
  8. MONTELUKAST [Concomitant]
     Active Substance: MONTELUKAST SODIUM
  9. MUPIROCIN. [Concomitant]
     Active Substance: MUPIROCIN
  10. TESTOSTERONE. [Concomitant]
     Active Substance: TESTOSTERONE
  11. CLEOCIN [Concomitant]
     Active Substance: CLINDAMYCIN PHOSPHATE
  12. METRONIDAZOL [Concomitant]
     Active Substance: METRONIDAZOLE
  13. MOMETASONE [Concomitant]
     Active Substance: MOMETASONE
  14. PANTOPRAZOLE [Concomitant]
     Active Substance: PANTOPRAZOLE
  15. PROAIR HFA [Concomitant]
     Active Substance: ALBUTEROL SULFATE
  16. TRAMADOL. [Concomitant]
     Active Substance: TRAMADOL
  17. ALBUTEROL. [Concomitant]
     Active Substance: ALBUTEROL
  18. MELATONIN [Concomitant]
     Active Substance: MELATONIN
  19. VITAMIN B12 [Concomitant]
     Active Substance: CYANOCOBALAMIN
  20. DICYCLOMINE [Concomitant]
     Active Substance: DICYCLOMINE HYDROCHLORIDE
  21. HYDROCHLOROTHIAZID [Concomitant]
     Active Substance: HYDROCHLOROTHIAZIDE
  22. MILK THISTLE PLUS [Concomitant]
     Active Substance: DIETARY SUPPLEMENT\HERBALS\MILK THISTLE
  23. ARMOUR THYROID [Concomitant]
     Active Substance: THYROID, PORCINE
  24. BUPROPION HCL [Concomitant]
     Active Substance: BUPROPION HYDROCHLORIDE
  25. HYDROCORTISONE. [Concomitant]
     Active Substance: HYDROCORTISONE
  26. POTASSIUM CHLORIDE. [Concomitant]
     Active Substance: POTASSIUM CHLORIDE
  27. TRACLEER [Suspect]
     Active Substance: BOSENTAN
     Dosage: 62.5 MG, BID
     Route: 048
     Dates: start: 20150904
  28. BIOTIN [Concomitant]
     Active Substance: BIOTIN
  29. GABAPENTIN AAA [Concomitant]
  30. PROGESTERONE. [Concomitant]
     Active Substance: PROGESTERONE
  31. BENTYL [Concomitant]
     Active Substance: DICYCLOMINE HYDROCHLORIDE

REACTIONS (13)
  - Spinal operation [Unknown]
  - Arthropod bite [Unknown]
  - Urinary tract infection [Recovered/Resolved]
  - Muscle strain [Recovering/Resolving]
  - Contusion [Recovering/Resolving]
  - Unevaluable event [Unknown]
  - Pneumonia [Recovered/Resolved]
  - Feeling jittery [Unknown]
  - Chest pain [Recovered/Resolved]
  - Neck surgery [Unknown]
  - Orthopaedic procedure [Unknown]
  - Lyme disease [Unknown]
  - Hospitalisation [Unknown]

NARRATIVE: CASE EVENT DATE: 20171125
